FAERS Safety Report 8066292-5 (Version None)
Quarter: 2012Q1

REPORT INFORMATION
  Report Type: 
  Country: None (occurrence: None)
  Receive Date: 20120124
  Receipt Date: 20120120
  Transmission Date: 20120608
  Serious: Yes (Other)
  Sender: FDA-Public Use
  Company Number: US-PFIZER INC-2012017272

PATIENT
  Sex: Female

DRUGS (2)
  1. VITAMIN TAB [Concomitant]
  2. XANAX [Suspect]
     Dosage: UNK
     Dates: start: 20110801

REACTIONS (9)
  - NEURALGIA [None]
  - BURNING SENSATION [None]
  - ANXIETY [None]
  - PAIN IN EXTREMITY [None]
  - PARAESTHESIA [None]
  - THYROID DISORDER [None]
  - NEUROPATHY PERIPHERAL [None]
  - STRESS [None]
  - HEADACHE [None]
